FAERS Safety Report 13770211 (Version 1)
Quarter: 2017Q3

REPORT INFORMATION
  Report Type: Spontaneous
  Country: US (occurrence: US)
  Receive Date: 20170719
  Receipt Date: 20170719
  Transmission Date: 20171127
  Serious: No
  Sender: FDA-Public Use
  Company Number: GXBR2017US001945

PATIENT
  Sex: Female
  Weight: 58.96 kg

DRUGS (3)
  1. METOPROLOL. [Concomitant]
     Active Substance: METOPROLOL
     Indication: HYPERTENSION
     Dosage: 1 DF, BID
     Route: 048
  2. LISINOPRIL TABLETS, USP [Suspect]
     Active Substance: LISINOPRIL
     Indication: HYPERTENSION
     Dosage: 10 MG, QHS
     Route: 048
  3. ATORVASTATIN [Concomitant]
     Active Substance: ATORVASTATIN
     Indication: BLOOD CHOLESTEROL INCREASED
     Dosage: 1 DF, QHS
     Route: 048

REACTIONS (5)
  - Hypersensitivity [Unknown]
  - Pharyngeal oedema [Unknown]
  - Mouth swelling [Unknown]
  - Dyspnoea [Unknown]
  - Peripheral swelling [Unknown]
